FAERS Safety Report 4263652-5 (Version None)
Quarter: 2004Q1

REPORT INFORMATION
  Report Type: 
  Country: None (occurrence: None)
  Receive Date: 20040102
  Receipt Date: 20031212
  Transmission Date: 20041129
  Serious: Yes (Hospitalization, Other)
  Sender: FDA-Public Use
  Company Number: USA031254590

PATIENT
  Age: 42 Year
  Sex: Female

DRUGS (4)
  1. HUMULIN R [Suspect]
     Indication: DIABETES MELLITUS
  2. ZYPREXA [Suspect]
     Indication: THINKING ABNORMAL
     Dosage: 15 MG/AT BEDTIME
     Dates: start: 20031101
  3. LANTUS [Concomitant]
  4. RISPERDAL [Suspect]

REACTIONS (3)
  - CATHETER RELATED INFECTION [None]
  - DIZZINESS [None]
  - URINARY TRACT INFECTION [None]
